FAERS Safety Report 4342216-9 (Version None)
Quarter: 2004Q1

REPORT INFORMATION
  Report Type: 
  Country: None (occurrence: None)
  Receive Date: 20040329
  Receipt Date: 20040206
  Transmission Date: 20041129
  Serious: No
  Sender: FDA-Public Use
  Company Number: USA031151646

PATIENT
  Age: 6 Year
  Sex: Male
  Weight: 32 kg

DRUGS (2)
  1. STRATTERA [Suspect]
     Indication: ATTENTION DEFICIT/HYPERACTIVITY DISORDER
     Dosage: 25 MG/DAY
     Dates: start: 20031001
  2. RITALIN [Concomitant]

REACTIONS (2)
  - BLOOD BILIRUBIN INCREASED [None]
  - JAUNDICE [None]
